FAERS Safety Report 5801590-4 (Version None)
Quarter: 2008Q2

REPORT INFORMATION
  Report Type: 
  Country: None (occurrence: None)
  Receive Date: 20080626
  Receipt Date: 20071126
  Transmission Date: 20081010
  Serious: No
  Sender: FDA-Public Use
  Company Number: 533362

PATIENT
  Age: 40 Year
  Sex: Female
  Weight: 81.6 kg

DRUGS (2)
  1. XELODA [Suspect]
     Indication: BREAST CANCER
     Dates: start: 20071119
  2. IXABEPILONE (IXBEPILONE) [Suspect]
     Indication: BREAST CANCER
     Dosage: 77 MG INTRAVENOUS
     Route: 042
     Dates: start: 20071119

REACTIONS (2)
  - NEUTROPHIL COUNT DECREASED [None]
  - WHITE BLOOD CELL COUNT DECREASED [None]
